FAERS Safety Report 11615252 (Version 1)
Quarter: 2015Q4

REPORT INFORMATION
  Report Type: Spontaneous
  Country: US (occurrence: US)
  Receive Date: 20151009
  Receipt Date: 20151009
  Transmission Date: 20160304
  Serious: No
  Sender: FDA-Public Use
  Company Number: US-PFIZER INC-2015334234

PATIENT
  Age: 66 Year
  Sex: Male

DRUGS (2)
  1. HYDROCODONE [Concomitant]
     Active Substance: HYDROCODONE
     Dosage: UNK, DAILY (1-2 TIMES)
  2. BOSULIF [Suspect]
     Active Substance: BOSUTINIB MONOHYDRATE
     Indication: WHITE BLOOD CELL COUNT INCREASED
     Dosage: 300 MG, 1X/DAY
     Route: 048
     Dates: start: 201509

REACTIONS (3)
  - Productive cough [Unknown]
  - Constipation [Unknown]
  - Cough [Unknown]
